FAERS Safety Report 4614338-6 (Version None)
Quarter: 2005Q2

REPORT INFORMATION
  Report Type: 
  Country: None (occurrence: None)
  Receive Date: 20050308
  Receipt Date: 20041109
  Transmission Date: 20051028
  Serious: Yes (Other)
  Sender: FDA-Public Use
  Company Number: 2004UW23207

PATIENT
  Age: 80 Year
  Sex: Male
  Weight: 92.986 kg

DRUGS (13)
  1. CRESTOR [Suspect]
     Indication: BLOOD CHOLESTEROL INCREASED
     Dosage: 10 MG PO
     Route: 048
     Dates: start: 20031201
  2. PLAVIX [Concomitant]
  3. FOLIC ACID [Concomitant]
  4. ASPIRIN [Concomitant]
  5. CAPTOPRIL [Concomitant]
  6. TEMAZEPAM [Concomitant]
  7. NIFEDIPAT [Concomitant]
  8. OXYBUTYNIN [Concomitant]
  9. OMEGA [Concomitant]
  10. FISH OIL [Concomitant]
  11. METOPROLOL [Concomitant]
  12. LEVOXYL [Concomitant]
  13. LANTUS [Concomitant]

REACTIONS (2)
  - ANOREXIA [None]
  - WEIGHT DECREASED [None]
